FAERS Safety Report 8533116 (Version 2)
Quarter: 2012Q4

REPORT INFORMATION
  Report Type: 
  Country: US (occurrence: US)
  Receive Date: 20120427
  Receipt Date: 20120906
  Transmission Date: 20130627
  Serious: Yes (Hospitalization)
  Sender: FDA-Public Use
  Company Number: US-BAYER-2012-039741

PATIENT
  Age: 21 Year
  Sex: Female
  Weight: 97.96 kg

DRUGS (9)
  1. YASMIN [Suspect]
     Indication: POLYCYSTIC OVARIES
     Dosage: UNK
     Dates: start: 200303, end: 20070316
  2. YASMIN [Suspect]
     Indication: MENSTRUATION IRREGULAR
  3. MOTRIN [Concomitant]
     Dosage: 400 mg, daily
     Dates: start: 20070316
  4. LEXAPRO [Concomitant]
     Dosage: 10 mg, 1 ? tablets daily
     Dates: start: 20080626
  5. XANAX [Concomitant]
     Dosage: 0.25mg 1-2 [every 12 hours] as needed
     Dates: start: 20080626
  6. TORADOL [Concomitant]
     Indication: CHEST DISCOMFORT
  7. TORADOL [Concomitant]
     Indication: PAIN
  8. TYLENOL #3 [Concomitant]
  9. PROVERA [Concomitant]

REACTIONS (9)
  - Deep vein thrombosis [Recovered/Resolved]
  - Pulmonary embolism [None]
  - Cholecystectomy [None]
  - Cholecystitis chronic [None]
  - Injury [None]
  - General physical health deterioration [None]
  - Emotional distress [None]
  - Pain [None]
  - Anxiety [None]
